FAERS Safety Report 17580596 (Version 1)
Quarter: 2020Q1

REPORT INFORMATION
  Report Type: Spontaneous
  Country: US (occurrence: US)
  Receive Date: 20200325
  Receipt Date: 20200325
  Transmission Date: 20200409
  Serious: Yes (Disabling)
  Sender: FDA-Public Use
  Company Number: NVSC2020US082155

PATIENT
  Age: 74 Year
  Sex: Female
  Weight: 51.71 kg

DRUGS (2)
  1. XIIDRA [Suspect]
     Active Substance: LIFITEGRAST
     Dosage: UNK (ONCE A DAY STARTING END OF NOVERMBER AND DISCONTINUED AT THE END OF DECEMBER)
     Route: 065
  2. XIIDRA [Suspect]
     Active Substance: LIFITEGRAST
     Indication: DRY EYE
     Dosage: 0.2 ML, BID (ONCE A DAY STARTING END OF NOVEMBER AND DISCONTINUED AT THE END OF DECEMBER)
     Route: 047
     Dates: start: 20190411, end: 20191206

REACTIONS (4)
  - Dyspnoea [Not Recovered/Not Resolved]
  - Lung disorder [Not Recovered/Not Resolved]
  - Wheezing [Not Recovered/Not Resolved]
  - Productive cough [Recovering/Resolving]

NARRATIVE: CASE EVENT DATE: 20190708
